FAERS Safety Report 4467754-X (Version None)
Quarter: 2004Q4

REPORT INFORMATION
  Report Type: 
  Country: None (occurrence: None)
  Receive Date: 20041001
  Receipt Date: 20040915
  Transmission Date: 20050328
  Serious: Yes (Life-Threatening)
  Sender: FDA-Public Use
  Company Number: 10061949-NA03-3

PATIENT
  Age: 2 Year
  Sex: Female
  Weight: 13 kg

DRUGS (7)
  1. TRAVASOL 10% [Suspect]
     Indication: VOLVULUS OF BOWEL
     Dosage: 26GM IN TPN, D, IV
     Route: 042
     Dates: start: 20021001
  2. INTRALIPID 10% [Suspect]
     Indication: VOLVULUS OF BOWEL
     Dosage: 74 ML IN TPN, D, IV
     Route: 042
     Dates: start: 20021001, end: 20040914
  3. 12% DEXTEROXE [Concomitant]
  4. MULTI-VITAMIN [Concomitant]
  5. VITAMIN C [Concomitant]
  6. HEPARIN [Concomitant]
  7. LEVOCARNITINE [Concomitant]

REACTIONS (1)
  - HEPATIC FAILURE [None]
